FAERS Safety Report 4470640-2 (Version None)
Quarter: 2004Q4

REPORT INFORMATION
  Report Type: 
  Country: None (occurrence: None)
  Receive Date: 20041005
  Receipt Date: 20040922
  Transmission Date: 20050328
  Serious: Yes (Hospitalization)
  Sender: FDA-Public Use
  Company Number: 2004070400

PATIENT
  Age: 41 Year
  Sex: Female

DRUGS (7)
  1. OXYTETRACYCLINE HCL [Suspect]
     Indication: INFECTION PROPHYLAXIS
     Dosage: 0.5 GRAM (1 IN 1 D), ORAL TOPICAL
     Route: 048
     Dates: start: 20021202, end: 20021202
  2. OXYTETRACYCLINE HCL [Suspect]
     Indication: PERICORONITIS
     Dosage: 0.5 GRAM (1 IN 1 D), ORAL TOPICAL
     Route: 048
     Dates: start: 20021202, end: 20021202
  3. CHLORHEXIDINE GLUCONATE [Suspect]
     Indication: INFECTION PROPHYLAXIS
     Dosage: 0.5 GRAM (1 IN 1 D), ORAL TOPICAL
     Route: 048
     Dates: start: 20021202, end: 20021202
  4. CHLORHEXIDINE GLUCONATE [Suspect]
     Indication: PERICORONITIS
     Dosage: 0.5 GRAM (1 IN 1 D), ORAL TOPICAL
     Route: 048
     Dates: start: 20021202, end: 20021202
  5. PHENOXYMETHYL PENICILLIN [Suspect]
     Indication: INFECTION PROPHYLAXIS
     Dosage: 2 GRAM (1 GRAM, 1 IN 1D), ORAL
     Route: 048
     Dates: start: 20021202, end: 20021202
  6. PHENOXYMETHYL PENICILLIN [Suspect]
     Indication: PERICORONITIS
     Dosage: 2 GRAM (1 GRAM, 1 IN 1D), ORAL
     Route: 048
     Dates: start: 20021202, end: 20021202
  7. SALT SOLUTIONS (SALT SOLUTIONS) [Concomitant]

REACTIONS (10)
  - ABDOMINAL PAIN UPPER [None]
  - ANAPHYLACTIC REACTION [None]
  - ERYTHEMA [None]
  - FEELING ABNORMAL [None]
  - NAUSEA [None]
  - PALPITATIONS [None]
  - PARAESTHESIA EAR [None]
  - PARAESTHESIA ORAL [None]
  - PRURITUS [None]
  - SENSORY LOSS [None]
